FAERS Safety Report 18776273 (Version 1)
Quarter: 2021Q1

REPORT INFORMATION
  Report Type: Spontaneous
  Country: US (occurrence: US)
  Receive Date: 20210123
  Receipt Date: 20210123
  Transmission Date: 20210419
  Serious: No
  Sender: FDA-Public Use
  Company Number: US-CADILA HEALTHCARE LIMITED-US-ZYDUS-058116

PATIENT
  Age: 68 Year
  Sex: Female

DRUGS (1)
  1. CHOLESTYRAMINE 4 GRAM SUSPENSION [Suspect]
     Active Substance: CHOLESTYRAMINE
     Indication: DIARRHOEA
     Dosage: 4 GRAM, QD
     Route: 048
     Dates: start: 20201106, end: 20201106

REACTIONS (7)
  - Product physical issue [Unknown]
  - Choking sensation [Recovered/Resolved]
  - Foreign body in throat [Not Recovered/Not Resolved]
  - Dyspnoea [Recovered/Resolved]
  - Throat clearing [Not Recovered/Not Resolved]
  - Nausea [Unknown]
  - Product use in unapproved indication [Recovered/Resolved]

NARRATIVE: CASE EVENT DATE: 20201106
